FAERS Safety Report 6251502-7 (Version None)
Quarter: 2009Q2

REPORT INFORMATION
  Report Type: 
  Country: None (occurrence: None)
  Receive Date: 20090626
  Receipt Date: 20090626
  Transmission Date: 20091009
  Serious: Yes (Other)
  Sender: FDA-Public Use
  Company Number: None

PATIENT
  Age: 55 Year
  Sex: Male
  Weight: 77.1115 kg

DRUGS (1)
  1. ZICAM NASAL SPRAY [Suspect]
     Dosage: AS INSTRUCTED
     Dates: start: 20020101, end: 20061231

REACTIONS (1)
  - HYPOSMIA [None]
